FAERS Safety Report 20603084 (Version 4)
Quarter: 2022Q2

REPORT INFORMATION
  Report Type: Report from Study
  Country: ES (occurrence: ES)
  Receive Date: 20220316
  Receipt Date: 20220601
  Transmission Date: 20220721
  Serious: Yes (Death, Life-Threatening, Hospitalization)
  Sender: FDA-Public Use
  Company Number: ES-JAZZ-2022-ES-006405

PATIENT
  Age: 60 Year
  Sex: Female
  Weight: 76.186 kg

DRUGS (14)
  1. LURBINECTEDIN [Suspect]
     Active Substance: LURBINECTEDIN
     Indication: Endometrial cancer
     Dosage: 2.6 MILLIGRAM/SQ. METER, D1Q3W
     Route: 042
     Dates: start: 20211123, end: 20211123
  2. LURBINECTEDIN [Suspect]
     Active Substance: LURBINECTEDIN
     Dosage: 4.7 MILLIGRAM, CYCLE 04-DAY 1
     Route: 042
     Dates: start: 20220210, end: 20220210
  3. IRINOTECAN [Suspect]
     Active Substance: IRINOTECAN
     Indication: Endometrial cancer
     Dosage: 60 MILLIGRAM/SQ. METER, D1D8Q3W
     Route: 042
     Dates: start: 20211123, end: 20211123
  4. IRINOTECAN [Suspect]
     Active Substance: IRINOTECAN
     Dosage: 109 MILLIGRAM, CYCLE 04-DAY 1
     Route: 042
     Dates: start: 20220210, end: 20220210
  5. SIMVASTATIN [Concomitant]
     Active Substance: SIMVASTATIN
     Indication: Dyslipidaemia
     Dosage: UNK
     Dates: start: 2020
  6. ENALAPRIL [Concomitant]
     Active Substance: ENALAPRIL
     Indication: Hypertension
     Dosage: UNK
     Dates: start: 2020
  7. TRAMADOL [Concomitant]
     Active Substance: TRAMADOL
     Indication: Abdominal hernia
     Dosage: UNK
     Dates: start: 2021
  8. DEXKETOPROFEN [Concomitant]
     Active Substance: DEXKETOPROFEN
     Indication: Abdominal hernia
     Dosage: UNK
     Dates: start: 2021
  9. GRANULOCYTE COLONY-STIMULATING FACTOR NOS [Concomitant]
     Active Substance: GRANULOCYTE COLONY-STIMULATING FACTOR NOS
     Dosage: UNK
     Dates: start: 20220211, end: 20220215
  10. ATROPINE [Concomitant]
     Active Substance: ATROPINE
     Indication: Prophylaxis
     Dosage: UNK
     Dates: start: 20220210, end: 20220210
  11. METAMIZOL [Concomitant]
     Active Substance: METAMIZOLE SODIUM
     Dosage: UNK
     Dates: start: 20220118, end: 20220209
  12. ACETAMINOPHEN [Concomitant]
     Active Substance: ACETAMINOPHEN
     Indication: Neutropenic colitis
     Dosage: UNK
     Dates: start: 20220118, end: 20220209
  13. DEXAMETHASONE [Concomitant]
     Active Substance: DEXAMETHASONE
     Dosage: UNK
     Dates: start: 20220210, end: 20220210
  14. ONDANSETRON [Concomitant]
     Active Substance: ONDANSETRON
     Indication: Neutropenic colitis
     Dosage: UNK
     Dates: start: 20220210, end: 20220210

REACTIONS (1)
  - Neutropenic colitis [Fatal]

NARRATIVE: CASE EVENT DATE: 20220218
